FAERS Safety Report 18510952 (Version 1)
Quarter: 2020Q4

REPORT INFORMATION
  Report Type: Report from Study
  Country: US (occurrence: US)
  Receive Date: 20201117
  Receipt Date: 20201117
  Transmission Date: 20210114
  Serious: Yes (Hospitalization)
  Sender: FDA-Public Use
  Company Number: US-JNJFOC-20200722280

PATIENT
  Age: 76 Year
  Sex: Male
  Weight: 98.5 kg

DRUGS (14)
  1. ASPRIN [Concomitant]
     Active Substance: ASPIRIN
  2. COREG [Concomitant]
     Active Substance: CARVEDILOL
  3. CRESTOR [Concomitant]
     Active Substance: ROSUVASTATIN CALCIUM
     Dosage: ROSUVASTATIN (CRESTOR) 20 MG TABLET 1 TAB A DAY
  4. PREDNISONE. [Suspect]
     Active Substance: PREDNISONE
     Indication: PROSTATE CANCER METASTATIC
     Route: 065
  5. TYLENOL [Concomitant]
     Active Substance: ACETAMINOPHEN
     Indication: PAIN
  6. AMLODIPINE [Concomitant]
     Active Substance: AMLODIPINE BESYLATE
  7. ABIRATERONE ACETATE. [Suspect]
     Active Substance: ABIRATERONE ACETATE
     Indication: PROSTATE CANCER METASTATIC
     Route: 048
     Dates: start: 20181022
  8. KLONOPIN [Concomitant]
     Active Substance: CLONAZEPAM
  9. POTASSIUM [Concomitant]
     Active Substance: POTASSIUM
  10. APALUTAMIDE [Suspect]
     Active Substance: APALUTAMIDE
     Indication: PROSTATE CANCER METASTATIC
     Route: 048
     Dates: start: 20181022
  11. CATAPRES                           /00171101/ [Concomitant]
     Active Substance: CLONIDINE
     Indication: BLOOD PRESSURE MEASUREMENT
  12. LEXAPRO [Concomitant]
     Active Substance: ESCITALOPRAM OXALATE
  13. NEURONTIN [Concomitant]
     Active Substance: GABAPENTIN
  14. DIOVAN [Concomitant]
     Active Substance: VALSARTAN
     Dosage: TAKE 1 TABLET (160 MG) BY MOUTH TWICE DAILY
     Route: 048

REACTIONS (10)
  - Pyrexia [Unknown]
  - Back pain [Unknown]
  - Respiratory tract congestion [Unknown]
  - Cough [Unknown]
  - Headache [Unknown]
  - Diarrhoea [Recovered/Resolved]
  - Chest pain [Unknown]
  - COVID-19 pneumonia [Unknown]
  - COVID-19 [Unknown]
  - Abdominal pain [Unknown]

NARRATIVE: CASE EVENT DATE: 20200713
